FAERS Safety Report 25513880 (Version 2)
Quarter: 2025Q3

REPORT INFORMATION
  Report Type: Spontaneous
  Country: US (occurrence: US)
  Receive Date: 20250703
  Receipt Date: 20250707
  Transmission Date: 20251021
  Serious: No
  Sender: SANOFI AVENTIS
  Company Number: US-SA-2025SA187140

PATIENT
  Sex: Female
  Weight: 84.09 kg

DRUGS (29)
  1. DUPIXENT [Suspect]
     Active Substance: DUPILUMAB
     Indication: Asthma
     Dosage: 300 MG, QOW
     Route: 058
  2. GLYDO [Concomitant]
     Active Substance: LIDOCAINE HYDROCHLORIDE ANHYDROUS
  3. VITAMINS [Concomitant]
     Active Substance: VITAMINS
  4. FISH OIL [Concomitant]
     Active Substance: FISH OIL
  5. XOLAIR [Concomitant]
     Active Substance: OMALIZUMAB
  6. RHINOCORT ALLERGY [Concomitant]
     Active Substance: BUDESONIDE
  7. CYCLOBENZAPRINE HYDROCHLORIDE [Concomitant]
     Active Substance: CYCLOBENZAPRINE HYDROCHLORIDE
  8. TRUVADA [Concomitant]
     Active Substance: EMTRICITABINE\TENOFOVIR DISOPROXIL FUMARATE
  9. MELATONIN [Concomitant]
     Active Substance: MELATONIN
  10. MAGNESIUM [Concomitant]
     Active Substance: MAGNESIUM
  11. AMITRIPTYLINE HYDROCHLORIDE [Concomitant]
     Active Substance: AMITRIPTYLINE HYDROCHLORIDE
  12. LEVOTHYROXINE [Concomitant]
     Active Substance: LEVOTHYROXINE
  13. KETOCONAZOLE [Concomitant]
     Active Substance: KETOCONAZOLE
  14. AZELASTINE HYDROCHLORIDE [Concomitant]
     Active Substance: AZELASTINE HYDROCHLORIDE
  15. ELMIRON [Concomitant]
     Active Substance: PENTOSAN POLYSULFATE SODIUM
  16. GABAPENTIN [Concomitant]
     Active Substance: GABAPENTIN
  17. ADVAIR HFA [Concomitant]
     Active Substance: FLUTICASONE PROPIONATE\SALMETEROL XINAFOATE
  18. YUPELRI [Concomitant]
     Active Substance: REVEFENACIN
  19. ALBUTEROL SULFATE [Concomitant]
     Active Substance: ALBUTEROL SULFATE
  20. SINGULAIR [Concomitant]
     Active Substance: MONTELUKAST SODIUM
  21. COMBIVENT RESPIMAT [Concomitant]
     Active Substance: ALBUTEROL SULFATE\IPRATROPIUM BROMIDE
  22. PULMICORT TURBUHALER [Concomitant]
     Active Substance: BUDESONIDE
  23. EPINEPHRINE [Concomitant]
     Active Substance: EPINEPHRINE
  24. VITAMIN D3 [Concomitant]
     Active Substance: CHOLECALCIFEROL
  25. PANTOPRAZOLE SODIUM [Concomitant]
     Active Substance: PANTOPRAZOLE SODIUM
  26. NEXPLANON [Concomitant]
     Active Substance: ETONOGESTREL
  27. FERROUS SULFATE [Concomitant]
     Active Substance: FERROUS SULFATE
  28. LORATADINE [Concomitant]
     Active Substance: LORATADINE
  29. ACYCLOVIR [Concomitant]
     Active Substance: ACYCLOVIR

REACTIONS (2)
  - Asthma [Unknown]
  - Rebound effect [Unknown]
